FAERS Safety Report 5089466-4 (Version None)
Quarter: 2006Q3

REPORT INFORMATION
  Report Type: 
  Country: None (occurrence: None)
  Receive Date: 20060822
  Receipt Date: 20060815
  Transmission Date: 20061208
  Serious: Yes (Hospitalization, Other)
  Sender: FDA-Public Use
  Company Number: 2006-06-0112

PATIENT
  Sex: Male
  Weight: 68 kg

DRUGS (1)
  1. INTRON A [Suspect]
     Indication: HEPATITIS C
     Dosage: 3 MIU INTRAMUSCULAR
     Route: 030
     Dates: start: 20010101, end: 20060101

REACTIONS (2)
  - HEPATIC CIRRHOSIS [None]
  - HEPATOPULMONARY SYNDROME [None]
